FAERS Safety Report 4561524-X (Version None)
Quarter: 2005Q1

REPORT INFORMATION
  Report Type: 
  Country: None (occurrence: None)
  Receive Date: 20050126
  Receipt Date: 20001023
  Transmission Date: 20050727
  Serious: Yes (Hospitalization)
  Sender: FDA-Public Use
  Company Number: 10583250

PATIENT
  Age: 1 Day
  Sex: Male
  Weight: 3 kg

DRUGS (17)
  1. ZERIT [Suspect]
     Dosage: FROM THE 13TH WEEK OF GESTATION.
     Route: 064
  2. ZERIT [Suspect]
     Route: 048
  3. VIDEX [Suspect]
     Dosage: FROM THE 13TH WEEK OF GESTATION.
     Route: 064
  4. VIDEX [Suspect]
     Dosage: SYRUP
     Route: 048
  5. SUSTIVA [Suspect]
     Dosage: ONGOING AT CONCEPTION
     Route: 064
     Dates: start: 19990601
  6. VIRAMUNE [Suspect]
  7. VIRAMUNE [Suspect]
     Dosage: DURING THE PREGNANCY AND AT DELIVERY.
     Route: 064
  8. COMBIVIR [Suspect]
     Dosage: ONGOING AT CONCEPTION
     Route: 064
     Dates: start: 19990601
  9. NORVIR [Suspect]
     Dosage: DISCONTINUED AROUND 30TH WEEK OF GESTATION.
     Route: 064
  10. RETROVIR [Suspect]
     Dosage: INFUSION AT DELIVERY
     Route: 064
  11. INVIRASE [Suspect]
     Dosage: FROM THE 16TH-30TH WEEK OF GESTATION.
     Route: 064
  12. CRIXIVAN [Suspect]
     Dosage: TAKEN AT CONCEPTION-16TH GESTATIONAL WEEK.
     Route: 064
     Dates: start: 19990601
  13. BACTRIM [Concomitant]
     Route: 064
  14. GYNOPEVARYL [Concomitant]
     Dosage: 16TH-35TH WEEK GESTATION.
     Route: 064
  15. NICARDIPINE HCL [Concomitant]
     Dosage: FROM 35TH WEEK OF GESTATION.
     Route: 064
  16. ALBUTEROL [Concomitant]
     Dosage: FROM 35TH WEEK OF GESTATION.
     Route: 064
  17. SPASFON [Concomitant]
     Dosage: FROM 35TH WEEK OF GESTATION.
     Route: 064

REACTIONS (18)
  - ABNORMAL BEHAVIOUR [None]
  - ASPARTATE AMINOTRANSFERASE INCREASED [None]
  - BLOOD CREATINE PHOSPHOKINASE INCREASED [None]
  - BLOOD LACTATE DEHYDROGENASE INCREASED [None]
  - CARDIOVASCULAR DISORDER [None]
  - DEPRESSION [None]
  - ELECTROENCEPHALOGRAM ABNORMAL [None]
  - GASTROINTESTINAL DISORDER [None]
  - GASTROINTESTINAL HAEMORRHAGE [None]
  - HAEMATOCHEZIA [None]
  - HEPATIC ENZYME INCREASED [None]
  - HYPERTRIGLYCERIDAEMIA [None]
  - LIPASE INCREASED [None]
  - LIVEDO RETICULARIS [None]
  - MICROCYTOSIS [None]
  - NEUTROPENIA [None]
  - PYELONEPHRITIS [None]
  - SPEECH DISORDER [None]
